FAERS Safety Report 17928105 (Version 1)
Quarter: 2020Q2

REPORT INFORMATION
  Report Type: Spontaneous
  Country: DE (occurrence: DE)
  Receive Date: 20200623
  Receipt Date: 20200623
  Transmission Date: 20200714
  Serious: Yes (Hospitalization)
  Sender: FDA-Public Use
  Company Number: DE-TEVA-2020-DE-1789083

PATIENT
  Age: 63 Year
  Sex: Male

DRUGS (21)
  1. COLECALCIFEROL (VITAMIN D) [Concomitant]
     Dosage: 20,000 IU / WEEK, 1-0-0-0
     Route: 048
  2. LEVOTHYROXIN-NATRIUM [Concomitant]
     Active Substance: LEVOTHYROXINE SODIUM
     Dosage: 112.5 MILLIGRAM DAILY; 112.5 MG, 1-0-0-0
     Route: 048
  3. DULOXETIN [Concomitant]
     Active Substance: DULOXETINE
     Dosage: 30 MILLIGRAM DAILY; 30 MG, 1-0-0-0
     Route: 048
  4. NITROLINGUAL [Concomitant]
     Active Substance: NITROGLYCERIN
     Dosage: NK MG, IF NECESSARY
     Route: 060
  5. PLASTULEN EISEN 55MG [Concomitant]
     Dosage: 55 MILLIGRAM DAILY; 55 MG, 1-0-0-0
     Route: 048
  6. EZETIMIB [Concomitant]
     Active Substance: EZETIMIBE
     Dosage: 20 MILLIGRAM DAILY; 20 MG, 0-0-1-0
     Route: 048
  7. CLOPIDOGREL [Concomitant]
     Active Substance: CLOPIDOGREL BISULFATE
     Dosage: 75 MILLIGRAM DAILY; 75 MG, 1-0-0-0
     Route: 048
  8. GABAPENTIN. [Concomitant]
     Active Substance: GABAPENTIN
     Dosage: 300 MILLIGRAM DAILY; 100 MG, 1-1-1-0
     Route: 048
  9. PANTOPRAZOL [Concomitant]
     Active Substance: PANTOPRAZOLE SODIUM
     Dosage: 40 MILLIGRAM DAILY; 40 MG, 1-0-0-0
     Route: 048
  10. INSULIN ASPART [Concomitant]
     Active Substance: INSULIN ASPART
     Dosage: NK MG, ACCORDING TO THE SCHEME
     Route: 058
  11. CANDESARTAN. [Concomitant]
     Active Substance: CANDESARTAN
     Dosage: 8 MILLIGRAM DAILY; 4 MG, 1-0-1-0
     Route: 048
  12. MAGNESIUM AAA 500MG [Concomitant]
     Dosage: 500 MG, 1-0-0-0
     Route: 048
  13. SIMVASTATIN. [Concomitant]
     Active Substance: SIMVASTATIN
     Dosage: 10 MILLIGRAM DAILY; 10 MG, 0-0-1-0
     Route: 048
  14. INSULIN GLARGIN [Concomitant]
     Active Substance: INSULIN GLARGINE
     Dosage: NK MG, ACCORDING TO THE SCHEME
     Route: 058
  15. TAPENTADOL [Concomitant]
     Active Substance: TAPENTADOL
     Dosage: 200 MILLIGRAM DAILY; 100 MG, 1-0-1-0
     Route: 048
  16. ALLOPURINOL. [Concomitant]
     Active Substance: ALLOPURINOL
     Dosage: .5 MILLIGRAM DAILY; 300 MG, 0-0-0.5-0
     Route: 048
  17. CINEOL [Concomitant]
     Dosage: 200 MG, IF NECESSARY
     Route: 048
  18. METOPROLOL. [Suspect]
     Active Substance: METOPROLOL
     Dosage: 95 MILLIGRAM DAILY; 47.5 MG, 1-0-1-0, RETARD-TABLET
     Route: 048
  19. ACETYLSALICYLS?URE [Concomitant]
     Active Substance: ASPIRIN
     Dosage: 100 MILLIGRAM DAILY; 100 MG, 0-1-0-0
     Route: 048
  20. AMLODIPIN [Concomitant]
     Active Substance: AMLODIPINE BESYLATE
     Dosage: 10 MILLIGRAM DAILY; 10 MG, 1-0-0-0
     Route: 048
  21. XIPAMID [Concomitant]
     Active Substance: XIPAMIDE
     Dosage: 10 MILLIGRAM DAILY; 10 MG, 1-0-0-0
     Route: 048

REACTIONS (5)
  - Ulcer [Unknown]
  - Wound [Unknown]
  - Localised infection [Unknown]
  - Peripheral arterial occlusive disease [Unknown]
  - Impaired healing [Unknown]
